FAERS Safety Report 10654203 (Version 2)
Quarter: 2015Q1

REPORT INFORMATION
  Report Type: Spontaneous
  Country: FR (occurrence: FR)
  Receive Date: 20141216
  Receipt Date: 20150311
  Transmission Date: 20150720
  Serious: Yes (Life-Threatening, Hospitalization, Other)
  Sender: FDA-Public Use
  Company Number: FR-UCBSA-2014020966

PATIENT
  Age: 87 Year
  Sex: Male

DRUGS (6)
  1. VIMPAT [Suspect]
     Active Substance: LACOSAMIDE
     Indication: EPILEPSY
     Dosage: 50 MG, 3X/DAY (TID)
     Route: 048
     Dates: start: 20140406, end: 20140526
  2. PREVISCAN [Concomitant]
     Active Substance: FLUINDIONE
     Indication: PRODUCT USED FOR UNKNOWN INDICATION
     Dosage: UNK
  3. TEGRETOL [Concomitant]
     Active Substance: CARBAMAZEPINE
     Indication: PRODUCT USED FOR UNKNOWN INDICATION
     Dosage: UNK
     Route: 048
     Dates: start: 20140715, end: 201408
  4. KEPPRA [Concomitant]
     Active Substance: LEVETIRACETAM
     Indication: EPILEPSY
     Dosage: UNKNOWN
     Dates: start: 20140401, end: 20140715
  5. VIMPAT [Suspect]
     Active Substance: LACOSAMIDE
     Dosage: UNKNOWN
     Route: 048
     Dates: start: 20140926, end: 20141031
  6. URBANYL [Concomitant]
     Active Substance: CLOBAZAM
     Indication: EPILEPSY
     Dosage: 10MG DAILY
     Dates: start: 20140401, end: 20141106

REACTIONS (4)
  - Prostatitis [Unknown]
  - Toxic skin eruption [Recovered/Resolved]
  - Inappropriate schedule of drug administration [Unknown]
  - Cholecystitis acute [Unknown]

NARRATIVE: CASE EVENT DATE: 2014
